FAERS Safety Report 8156352-2 (Version None)
Quarter: 2012Q1

REPORT INFORMATION
  Report Type: 
  Country: None (occurrence: None)
  Receive Date: 20120222
  Receipt Date: 20120215
  Transmission Date: 20120608
  Serious: Yes (Disabling)
  Sender: FDA-Public Use
  Company Number: US-PFIZER INC-2012041832

PATIENT
  Sex: Female
  Weight: 68.027 kg

DRUGS (6)
  1. NEXIUM [Concomitant]
     Indication: GASTROOESOPHAGEAL REFLUX DISEASE
     Dosage: UNK
  2. ZETIA [Suspect]
     Indication: BLOOD CHOLESTEROL INCREASED
     Dosage: UNK
  3. VITAMIN D [Concomitant]
     Indication: OSTEOPENIA
     Dosage: 50000 IU, DAILY
  4. CELEBREX [Suspect]
     Indication: EHLERS-DANLOS SYNDROME
     Dosage: 200 MG, DAILY
  5. CRESTOR [Suspect]
     Indication: BLOOD CHOLESTEROL INCREASED
     Dosage: UNK
  6. FIORICET [Concomitant]
     Indication: MIGRAINE
     Dosage: UNK

REACTIONS (9)
  - MIGRAINE [None]
  - ANXIETY [None]
  - BLOOD CHOLESTEROL INCREASED [None]
  - MYALGIA [None]
  - INTERVERTEBRAL DISC PROTRUSION [None]
  - DEPRESSION [None]
  - GAIT DISTURBANCE [None]
  - PAIN [None]
  - ABDOMINAL DISCOMFORT [None]
